FAERS Safety Report 11669191 (Version 3)
Quarter: 2016Q1

REPORT INFORMATION
  Report Type: Report from Study
  Country: US (occurrence: None)
  Receive Date: 20151027
  Receipt Date: 20160219
  Transmission Date: 20160525
  Serious: Yes (Other)
  Sender: FDA-Public Use
  Company Number: US-MDT-ADR-2015-02034

PATIENT
  Age: 50 Year
  Sex: Male

DRUGS (2)
  1. FENTANYL INTRATHECAL 300 MCG/ML [Suspect]
     Active Substance: FENTANYL
     Dosage: 120.01 MCG/DAY
  2. COMPOUNDED BACLOFEN INTRATHECAL 400 MCG/ML [Suspect]
     Active Substance: BACLOFEN
     Dosage: 160.02 MCG/DAY

REACTIONS (4)
  - Asthenia [None]
  - Infusion site fibrosis [None]
  - Infusion site mass [None]
  - Muscle spasms [None]
